FAERS Safety Report 10699279 (Version 1)
Quarter: 2015Q1

REPORT INFORMATION
  Report Type: Report from Study
  Country: IT (occurrence: IT)
  Receive Date: 20150108
  Receipt Date: 20150108
  Transmission Date: 20150721
  Serious: Yes (Other)
  Sender: FDA-Public Use
  Company Number: IT-ROCHE-1517577

PATIENT

DRUGS (2)
  1. OXALIPLATIN. [Suspect]
     Active Substance: OXALIPLATIN
     Indication: GASTROINTESTINAL CARCINOMA
     Route: 065
  2. CAPECITABINE. [Suspect]
     Active Substance: CAPECITABINE
     Indication: GASTROINTESTINAL CARCINOMA
     Dosage: ON DAYS 1 TO 14 FOLLOWED BY A WEEK OF REST
     Route: 048

REACTIONS (7)
  - Neurotoxicity [Unknown]
  - Anaemia [Unknown]
  - Transaminases increased [Unknown]
  - Thrombocytopenia [Unknown]
  - Neutropenia [Unknown]
  - Vomiting [Unknown]
  - Diarrhoea [Unknown]
